FAERS Safety Report 24452528 (Version 1)
Quarter: 2024Q4

REPORT INFORMATION
  Report Type: Spontaneous
  Country: US (occurrence: US)
  Receive Date: 20241017
  Receipt Date: 20241017
  Transmission Date: 20250115
  Serious: No
  Sender: SANOFI AVENTIS
  Company Number: US-SA-2024SA296355

PATIENT
  Sex: Female
  Weight: 26.82 kg

DRUGS (6)
  1. DUPIXENT [Suspect]
     Active Substance: DUPILUMAB
     Indication: Dermatitis atopic
     Dosage: 600.000MG 1X
     Route: 058
     Dates: start: 20240817, end: 20240817
  2. DUPIXENT [Suspect]
     Active Substance: DUPILUMAB
     Dosage: 300.000MG Q4W
     Route: 058
     Dates: start: 2024
  3. EUCRISA [Concomitant]
     Active Substance: CRISABOROLE
  4. HYDROCORTISONE [Concomitant]
     Active Substance: HYDROCORTISONE
  5. VITAMINS [Concomitant]
     Active Substance: VITAMINS
  6. TRIAMCINOLONE ACETONIDE [Concomitant]
     Active Substance: TRIAMCINOLONE ACETONIDE

REACTIONS (3)
  - Dermatitis atopic [Not Recovered/Not Resolved]
  - Erythema [Not Recovered/Not Resolved]
  - Pruritus [Not Recovered/Not Resolved]

NARRATIVE: CASE EVENT DATE: 20240901
